FAERS Safety Report 5845131-4 (Version None)
Quarter: 2008Q3

REPORT INFORMATION
  Report Type: 
  Country: None (occurrence: None)
  Receive Date: 20080813
  Receipt Date: 20080813
  Transmission Date: 20090109
  Serious: No
  Sender: FDA-Public Use
  Company Number: None

PATIENT
  Age: 49 Year
  Sex: Female
  Weight: 68.0396 kg

DRUGS (2)
  1. BUDEPRION 300MG TEVA [Suspect]
     Indication: DEPRESSION
     Dosage: 300 MG 1/DAY PO
     Route: 048
     Dates: start: 20070401, end: 20080630
  2. BUPROPRION 300MG WATSON [Suspect]
     Indication: DEPRESSION
     Dosage: 300 MG 1/DAY PO
     Route: 048
     Dates: start: 20080701, end: 20080812

REACTIONS (7)
  - AMNESIA [None]
  - DEPRESSION [None]
  - DISEASE RECURRENCE [None]
  - IRRITABILITY [None]
  - PARANOIA [None]
  - THERAPEUTIC RESPONSE UNEXPECTED WITH DRUG SUBSTITUTION [None]
  - WEIGHT INCREASED [None]
